FAERS Safety Report 6833442-5 (Version None)
Quarter: 2010Q3

REPORT INFORMATION
  Report Type: 
  Country: None (occurrence: None)
  Receive Date: 20100712
  Receipt Date: 20070326
  Transmission Date: 20110219
  Serious: No
  Sender: FDA-Public Use
  Company Number: US-PFIZER INC-2007025365

PATIENT
  Sex: Male
  Weight: 77.11 kg

DRUGS (3)
  1. CHANTIX [Suspect]
     Indication: SMOKING CESSATION THERAPY
     Dates: start: 20070101
  2. VYTORIN [Concomitant]
  3. TAMSULOSIN HYDROCHLORIDE [Concomitant]

REACTIONS (9)
  - ANGER [None]
  - ANXIETY [None]
  - DECREASED ACTIVITY [None]
  - DEPRESSION [None]
  - DISORIENTATION [None]
  - FATIGUE [None]
  - HYPERSOMNIA [None]
  - IRRITABILITY [None]
  - WITHDRAWAL SYNDROME [None]
